FAERS Safety Report 16356571 (Version 1)
Quarter: 2019Q2

REPORT INFORMATION
  Report Type: Spontaneous
  Country: JP (occurrence: JP)
  Receive Date: 20190527
  Receipt Date: 20190527
  Transmission Date: 20190711
  Serious: Yes (Other)
  Sender: FDA-Public Use
  Company Number: JP-SAKK-2019SA138279AA

PATIENT
  Sex: Male

DRUGS (1)
  1. ALPROLIX [Suspect]
     Active Substance: EFTRENONACOG ALFA
     Indication: FACTOR IX DEFICIENCY
     Dosage: DAILY DOSAGE: 2000 IU
     Route: 042

REACTIONS (3)
  - Haemorrhage [Recovered/Resolved]
  - Swelling [Recovered/Resolved]
  - Ligament sprain [Recovered/Resolved]
